FAERS Safety Report 7152586-4 (Version None)
Quarter: 2010Q4

REPORT INFORMATION
  Report Type: 
  Country: None (occurrence: None)
  Receive Date: 20101213
  Receipt Date: 20101202
  Transmission Date: 20110411
  Serious: Yes (Hospitalization)
  Sender: FDA-Public Use
  Company Number: JP-JNJFOC-20100104024

PATIENT
  Sex: Female
  Weight: 55 kg

DRUGS (22)
  1. DOXORUBICIN HCL [Suspect]
     Indication: OVARIAN CANCER RECURRENT
     Dosage: CYCLE 2
     Route: 042
     Dates: start: 20090512, end: 20100317
  2. DOXORUBICIN HCL [Suspect]
     Dosage: CYCLE 1
     Route: 042
     Dates: start: 20090512, end: 20100317
  3. DOXORUBICIN HCL [Suspect]
     Dosage: CYCLE 4
     Route: 042
     Dates: start: 20090512, end: 20100317
  4. DOXORUBICIN HCL [Suspect]
     Dosage: CYCLE 5
     Route: 042
     Dates: start: 20090512, end: 20100317
  5. DOXORUBICIN HCL [Suspect]
     Dosage: CYCLE 3
     Route: 042
     Dates: start: 20090512, end: 20100317
  6. DOXORUBICIN HCL [Suspect]
     Dosage: CYCLE 7
     Route: 042
     Dates: start: 20090512, end: 20100317
  7. DOXORUBICIN HCL [Suspect]
     Dosage: CYCLE 6
     Route: 042
     Dates: start: 20090512, end: 20100317
  8. DOXORUBICIN HCL [Suspect]
     Dosage: CYCLE 8
     Route: 042
     Dates: start: 20090512, end: 20100317
  9. DOXORUBICIN HCL [Suspect]
     Dosage: CYCLE 9
     Route: 042
     Dates: start: 20090512, end: 20100317
  10. DOXORUBICIN HCL [Suspect]
     Dosage: CYCLE 10
     Route: 042
     Dates: start: 20090512, end: 20100317
  11. KENALOG [Concomitant]
     Indication: STOMATITIS
     Route: 049
  12. MUCOSTA [Concomitant]
     Indication: PROPHYLAXIS
     Route: 048
  13. TAKEPRON [Concomitant]
     Indication: PROPHYLAXIS
     Route: 048
  14. LOXONIN [Concomitant]
     Route: 048
  15. RAMELTEON [Concomitant]
     Indication: PROPHYLAXIS
     Route: 048
  16. PYDOXAL [Concomitant]
     Indication: PROPHYLAXIS
     Route: 048
  17. BIOFERMIN [Concomitant]
     Indication: PROPHYLAXIS
     Route: 048
  18. HACHIAZULE [Concomitant]
     Indication: PROPHYLAXIS
     Route: 049
  19. METHYCOBAL [Concomitant]
     Indication: PROPHYLAXIS
     Route: 048
  20. RINDERON-VG [Concomitant]
     Indication: INJECTION SITE HAEMATOMA
     Route: 061
  21. CONCENTRATED HUMAN RED BLOOD CELLS [Concomitant]
     Indication: ANAEMIA
     Route: 042
  22. CONCENTRATED HUMAN RED BLOOD CELLS [Concomitant]
     Route: 042

REACTIONS (2)
  - ANAEMIA [None]
  - MALAISE [None]
